FAERS Safety Report 6042611-6 (Version None)
Quarter: 2009Q1

REPORT INFORMATION
  Report Type: 
  Country: None (occurrence: None)
  Receive Date: 20090119
  Receipt Date: 20090109
  Transmission Date: 20090719
  Serious: Yes (Hospitalization, Other)
  Sender: FDA-Public Use
  Company Number: JP-BAYER-200812972BYL

PATIENT
  Age: 54 Year
  Sex: Female

DRUGS (27)
  1. FLUDARA [Suspect]
     Indication: FOLLICLE CENTRE LYMPHOMA, FOLLICULAR GRADE I, II, III STAGE IV
     Dosage: TOTAL DAILY DOSE: 40 MG  UNIT DOSE: 10 MG
     Route: 048
     Dates: start: 20080414, end: 20080416
  2. FLUDARA [Suspect]
     Dosage: TOTAL DAILY DOSE: 40 MG  UNIT DOSE: 10 MG
     Route: 048
     Dates: start: 20080507, end: 20080509
  3. FLUDARA [Suspect]
     Dosage: TOTAL DAILY DOSE: 40 MG  UNIT DOSE: 10 MG
     Route: 048
     Dates: start: 20080527, end: 20080529
  4. FLUDARA [Suspect]
     Dosage: TOTAL DAILY DOSE: 40 MG  UNIT DOSE: 10 MG
     Route: 048
     Dates: start: 20080617, end: 20080619
  5. ENDOXAN [Suspect]
     Indication: FOLLICLE CENTRE LYMPHOMA, FOLLICULAR GRADE I, II, III STAGE IV
     Dosage: AS USED: 470 MG
     Route: 042
     Dates: start: 20080617, end: 20080619
  6. ENDOXAN [Suspect]
     Dosage: AS USED: 470 MG
     Route: 042
     Dates: start: 20080527, end: 20080529
  7. ENDOXAN [Suspect]
     Dosage: AS USED: 470 MG
     Route: 042
     Dates: start: 20080507, end: 20080509
  8. ENDOXAN [Suspect]
     Dosage: AS USED: 470 MG
     Route: 042
     Dates: start: 20080414, end: 20080416
  9. RITUXAN [Concomitant]
     Indication: FOLLICLE CENTRE LYMPHOMA, FOLLICULAR GRADE I, II, III STAGE IV
     Dosage: AS USED: 590 MG
     Route: 041
     Dates: start: 20080428, end: 20080428
  10. RITUXAN [Concomitant]
     Dosage: AS USED: 590 MG
     Route: 041
     Dates: start: 20080512, end: 20080512
  11. RITUXAN [Concomitant]
     Dosage: AS USED: 590 MG
     Route: 041
     Dates: start: 20080526, end: 20080526
  12. RITUXAN [Concomitant]
     Dosage: AS USED: 590 MG
     Route: 041
     Dates: start: 20080616, end: 20080616
  13. MUCOSTA [Concomitant]
     Indication: GASTRITIS PROPHYLAXIS
     Dosage: AS USED: 300 MG  UNIT DOSE: 100 MG
     Route: 048
     Dates: start: 20080414, end: 20080824
  14. COTRIM [Concomitant]
     Indication: ANTIFUNGAL PROPHYLAXIS
     Dosage: UNIT DOSE: 1 DF
     Route: 048
     Dates: start: 20080414, end: 20081008
  15. KYTRIL [Concomitant]
     Indication: PROPHYLAXIS OF NAUSEA AND VOMITING
     Dosage: AS USED: 3 MG
     Route: 048
     Dates: start: 20080414, end: 20080416
  16. NAUZELIN [Concomitant]
     Indication: PROPHYLAXIS OF NAUSEA AND VOMITING
     Dosage: AS USED: 30 MG
     Route: 048
     Dates: start: 20080414, end: 20080420
  17. NAUZELIN [Concomitant]
     Dosage: AS USED: 30 MG
     Route: 048
     Dates: start: 20080507, end: 20080513
  18. NEUTROGIN [Concomitant]
     Indication: PROPHYLAXIS
     Dosage: AS USED: 100 ?G
     Route: 058
     Dates: start: 20080430, end: 20080430
  19. NEUTROGIN [Concomitant]
     Dosage: AS USED: 100 ?G
     Route: 058
     Dates: start: 20080424, end: 20080424
  20. CALONAL [Concomitant]
     Indication: PREMEDICATION
     Dosage: AS USED: 400 MG
     Route: 048
     Dates: start: 20080428, end: 20080428
  21. CALONAL [Concomitant]
     Dosage: AS USED: 400 MG
     Route: 048
     Dates: start: 20080512, end: 20080512
  22. CALONAL [Concomitant]
     Dosage: AS USED: 400 MG
     Route: 048
     Dates: start: 20080526, end: 20080526
  23. CALONAL [Concomitant]
     Dosage: AS USED: 400 MG
     Route: 048
     Dates: start: 20080616, end: 20080616
  24. POLARAMINE [Concomitant]
     Indication: PREMEDICATION
     Dosage: AS USED: 2 MG
     Route: 048
     Dates: start: 20080428, end: 20080428
  25. POLARAMINE [Concomitant]
     Dosage: AS USED: 2 MG
     Route: 048
     Dates: start: 20080512, end: 20080512
  26. POLARAMINE [Concomitant]
     Dosage: AS USED: 2 MG
     Route: 048
     Dates: start: 20080526, end: 20080526
  27. POLARAMINE [Concomitant]
     Dosage: AS USED: 2 MG
     Route: 048
     Dates: start: 20080616, end: 20080616

REACTIONS (8)
  - ANAEMIA [None]
  - BRONCHITIS [None]
  - CALCULUS URINARY [None]
  - HEPATIC FUNCTION ABNORMAL [None]
  - HERPES SIMPLEX [None]
  - NEUTROPHIL COUNT DECREASED [None]
  - PLATELET COUNT DECREASED [None]
  - URINARY TRACT INFECTION [None]
